FAERS Safety Report 10402233 (Version 5)
Quarter: 2015Q3

REPORT INFORMATION
  Report Type: Spontaneous
  Country: US (occurrence: US)
  Receive Date: 20140822
  Receipt Date: 20150721
  Transmission Date: 20151125
  Serious: Yes (Death, Hospitalization, Disabling, Other)
  Sender: FDA-Public Use
  Company Number: US-009507513-1408USA012154

PATIENT
  Sex: Female
  Weight: 52.15 kg

DRUGS (3)
  1. BYETTA [Suspect]
     Active Substance: EXENATIDE
     Dosage: 10 MICROGRAM, BID
     Dates: start: 20090501, end: 20090819
  2. JANUMET [Suspect]
     Active Substance: METFORMIN HYDROCHLORIDE\SITAGLIPTIN PHOSPHATE
     Indication: TYPE 2 DIABETES MELLITUS
     Dosage: 50-500 MG, QD
     Route: 048
     Dates: start: 20091120, end: 20120709
  3. BYETTA [Suspect]
     Active Substance: EXENATIDE
     Dosage: 5 MICROGRAM, BID
     Dates: start: 20090819, end: 20091120

REACTIONS (75)
  - Ovarian cystectomy [Unknown]
  - Bile duct obstruction [Unknown]
  - Hypovolaemia [Unknown]
  - Shock [Unknown]
  - Hypomagnesaemia [Unknown]
  - Metabolic acidosis [Unknown]
  - Pancreatitis acute [Unknown]
  - Duodenal obstruction [Unknown]
  - Dilatation intrahepatic duct acquired [Unknown]
  - Stent placement [Unknown]
  - Small intestinal obstruction [Unknown]
  - Vomiting [Unknown]
  - Pancreatic carcinoma metastatic [Fatal]
  - Diabetes mellitus inadequate control [Unknown]
  - Cancer pain [Not Recovered/Not Resolved]
  - Gastrooesophageal reflux disease [Unknown]
  - Fall [Unknown]
  - Explorative laparotomy [Unknown]
  - Bile duct stent insertion [Unknown]
  - Thrombocytosis [Unknown]
  - Laparoscopy [Unknown]
  - Dysgeusia [Unknown]
  - Device occlusion [Unknown]
  - Respiratory distress [Unknown]
  - Metabolic acidosis [Unknown]
  - Anaemia [Unknown]
  - Stent placement [Unknown]
  - Panic disorder [Recovering/Resolving]
  - Haemorrhoidal haemorrhage [Unknown]
  - Early satiety [Unknown]
  - Hyperlipidaemia [Unknown]
  - Vitamin D decreased [Unknown]
  - Nerve block [Unknown]
  - Acute prerenal failure [Unknown]
  - Blood triglycerides increased [Unknown]
  - Neuropathy peripheral [Unknown]
  - Leukocytosis [Unknown]
  - Colitis [Unknown]
  - Ovarian adenoma [Unknown]
  - Nausea [Unknown]
  - Multi-organ failure [Fatal]
  - Oophorectomy [Unknown]
  - Renal tubular necrosis [Unknown]
  - Anxiety [Recovering/Resolving]
  - Paraesthesia [Unknown]
  - Decreased appetite [Unknown]
  - Malnutrition [Unknown]
  - Hypoalbuminaemia [Unknown]
  - Infection parasitic [Unknown]
  - Limb discomfort [Unknown]
  - Nephropathy [Unknown]
  - Hyperglycaemia [Unknown]
  - Anaemia [Unknown]
  - Ascites [Unknown]
  - Biliary drainage [Unknown]
  - Peritonitis [Unknown]
  - Hypotension [Recovered/Resolved]
  - Decreased appetite [Unknown]
  - Bile duct T-tube insertion [Unknown]
  - Gastrostomy [Unknown]
  - Haematuria [Unknown]
  - Cardiac murmur [Unknown]
  - Hypoglycaemia [Unknown]
  - Metastases to liver [Unknown]
  - Ovarian cyst [Unknown]
  - Dehydration [Unknown]
  - Hypokalaemia [Unknown]
  - Dehydration [Unknown]
  - Hypophosphataemia [Unknown]
  - Acute kidney injury [Unknown]
  - Depression [Unknown]
  - Adhesion [Unknown]
  - Hypertension [Unknown]
  - Blood alkaline phosphatase increased [Unknown]
  - Inappropriate schedule of drug administration [Unknown]

NARRATIVE: CASE EVENT DATE: 201007
